FAERS Safety Report 10611157 (Version 1)
Quarter: 2014Q4

REPORT INFORMATION
  Report Type: Spontaneous
  Country: IT (occurrence: None)
  Receive Date: 20141124
  Receipt Date: 20141124
  Transmission Date: 20150529
  Serious: Yes (Other)
  Sender: FDA-Public Use
  Company Number: IMP_08217_2014

PATIENT
  Age: 12 Year
  Sex: Male

DRUGS (2)
  1. DANTROLENE (DANTROLENE) [Suspect]
     Active Substance: DANTROLENE
     Indication: MUSCLE SPASTICITY
  2. BACLOFEN. [Concomitant]
     Active Substance: BACLOFEN

REACTIONS (3)
  - Dysphagia [None]
  - Vomiting [None]
  - Pneumonia aspiration [None]
